FAERS Safety Report 24771270 (Version 1)
Quarter: 2024Q4

REPORT INFORMATION
  Report Type: Spontaneous
  Country: US (occurrence: US)
  Receive Date: 20241224
  Receipt Date: 20241224
  Transmission Date: 20250114
  Serious: No
  Sender: LEXICON PHARMACEUTICALS
  Company Number: US-LEX-000589

PATIENT
  Sex: Female
  Weight: 87.09 kg

DRUGS (1)
  1. INPEFA [Suspect]
     Active Substance: SOTAGLIFLOZIN
     Indication: Cardiac amyloidosis
     Route: 048
     Dates: start: 20241112

REACTIONS (3)
  - Rash vesicular [Unknown]
  - Joint swelling [Unknown]
  - Diarrhoea [Unknown]

NARRATIVE: CASE EVENT DATE: 20240101
